FAERS Safety Report 7473445-3 (Version None)
Quarter: 2011Q1

REPORT INFORMATION
  Report Type: 
  Country: None (occurrence: None)
  Receive Date: 20110302
  Receipt Date: 20100720
  Transmission Date: 20110831
  Serious: Yes (Hospitalization)
  Sender: FDA-Public Use
  Company Number: 163-21880-10071864

PATIENT
  Age: 62 Year
  Sex: Female

DRUGS (1)
  1. REVLIMID [Suspect]
     Indication: MULTIPLE MYELOMA
     Dosage: 10 MG, DAILY FOR 21 DAYS, PO; 25 MG, 1 IN 1 D, PO
     Route: 048
     Dates: start: 20100116

REACTIONS (4)
  - PNEUMONIA [None]
  - HAEMOTHORAX [None]
  - RIB FRACTURE [None]
  - FALL [None]
